FAERS Safety Report 6912466-3 (Version None)
Quarter: 2010Q3

REPORT INFORMATION
  Report Type: 
  Country: None (occurrence: None)
  Receive Date: 20100806
  Receipt Date: 20080530
  Transmission Date: 20110219
  Serious: No
  Sender: FDA-Public Use
  Company Number: US-PFIZER INC-2008046491

PATIENT
  Sex: Female

DRUGS (5)
  1. GLUCOTROL XL [Suspect]
     Indication: DIABETES MELLITUS
     Dates: start: 20050101
  2. GLIPIZIDE [Suspect]
     Indication: DIABETES MELLITUS
     Dates: start: 20070601
  3. ATENOLOL [Concomitant]
  4. DIGOXIN [Concomitant]
  5. WARFARIN SODIUM [Concomitant]

REACTIONS (2)
  - HEPATOMEGALY [None]
  - MALAISE [None]
